FAERS Safety Report 13761339 (Version 2)
Quarter: 2018Q2

REPORT INFORMATION
  Report Type: Spontaneous
  Country: US (occurrence: US)
  Receive Date: 20170717
  Receipt Date: 20180522
  Transmission Date: 20180711
  Serious: Yes (Other)
  Sender: FDA-Public Use
  Company Number: US-PFIZER INC-2017303773

PATIENT
  Age: 66 Year
  Sex: Female

DRUGS (2)
  1. XELJANZ XR [Suspect]
     Active Substance: TOFACITINIB CITRATE
     Dosage: 11 MG, DAILY
     Dates: start: 20170627
  2. XELJANZ XR [Suspect]
     Active Substance: TOFACITINIB CITRATE
     Dosage: 11 MG, BID

REACTIONS (6)
  - Sinus disorder [Unknown]
  - Product use issue [Unknown]
  - Gastric disorder [Unknown]
  - Intestinal obstruction [Unknown]
  - Ear disorder [Unknown]
  - Abdominal pain upper [Unknown]
